FAERS Safety Report 6447821-1 (Version None)
Quarter: 2009Q4

REPORT INFORMATION
  Report Type: 
  Country: None (occurrence: None)
  Receive Date: 20091120
  Receipt Date: 20090908
  Transmission Date: 20100525
  Serious: No
  Sender: FDA-Public Use
  Company Number: A0806339A

PATIENT
  Age: 68 Year
  Sex: Female

DRUGS (2)
  1. VERAMYST [Suspect]
     Dosage: 2SPR PER DAY
     Route: 045
     Dates: start: 20081101, end: 20090501
  2. PRAVASTATIN [Concomitant]

REACTIONS (2)
  - NASAL DISCOMFORT [None]
  - NASAL DISORDER [None]
